FAERS Safety Report 10039875 (Version 2)
Quarter: 2014Q1

REPORT INFORMATION
  Report Type: Spontaneous
  Country: JP (occurrence: JP)
  Receive Date: 20140326
  Receipt Date: 20140326
  Transmission Date: 20141002
  Serious: Yes (Death, Hospitalization)
  Sender: FDA-Public Use
  Company Number: JP-DSJP-DSJ-2014-00169

PATIENT
  Sex: 0

DRUGS (12)
  1. OLMETEC TABLETS 20MG [Suspect]
     Indication: CARDIAC FAILURE
     Dosage: 20 MG, QD
     Route: 048
     Dates: start: 20131216, end: 20140103
  2. URIEF [Suspect]
     Indication: DYSURIA
     Dosage: 4 MG, BID
     Route: 048
     Dates: start: 20131218, end: 20140103
  3. NEXIUM [Suspect]
     Indication: PROPHYLAXIS
     Dosage: 10 MG, QD
     Route: 048
     Dates: start: 20131203, end: 20140103
  4. BAYASPIRIN [Concomitant]
     Indication: THROMBOSIS PROPHYLAXIS
     Dosage: 100 MG, QD
     Route: 048
     Dates: start: 20131127
  5. ARTIST TABLETS 2.5MG [Concomitant]
     Indication: CARDIAC FAILURE
     Dosage: 1.25 MG, QD
     Route: 048
     Dates: start: 20131204
  6. LASIX                              /00032601/ [Concomitant]
     Indication: CARDIAC FAILURE
     Dosage: 20 MG, QD
     Route: 048
     Dates: start: 20131207
  7. ALDACTONE A [Concomitant]
     Indication: CARDIAC FAILURE
     Dosage: 50 MG, QD
     Route: 048
     Dates: start: 20131213, end: 20140103
  8. MAGLAX [Concomitant]
     Indication: CONSTIPATION
     Dosage: 660 MG, TID
     Route: 048
     Dates: start: 20131202
  9. ANCARON [Concomitant]
     Indication: ATRIAL FIBRILLATION
     Dosage: 100 MG, BID
     Route: 048
     Dates: start: 20131212
  10. VASOLAN                            /00014302/ [Concomitant]
     Indication: ATRIAL FIBRILLATION
     Dosage: 40 MG, BID
     Route: 048
     Dates: start: 20131203
  11. PLETAAL [Concomitant]
     Indication: THROMBOSIS PROPHYLAXIS
     Dosage: 100 MG, BID
     Route: 048
     Dates: start: 20131210
  12. WARFARIN [Concomitant]
     Indication: THROMBOSIS PROPHYLAXIS
     Dosage: 3 MG, QD
     Route: 048
     Dates: start: 20131203

REACTIONS (3)
  - Death [Fatal]
  - Renal failure [Recovering/Resolving]
  - Off label use [Unknown]
